FAERS Safety Report 8433644-0 (Version None)
Quarter: 2012Q2

REPORT INFORMATION
  Report Type: 
  Country: None (occurrence: None)
  Receive Date: 20120613
  Receipt Date: 20120606
  Transmission Date: 20120825
  Serious: Yes (Hospitalization)
  Sender: FDA-Public Use
  Company Number: US-BAYER-2012-057488

PATIENT
  Age: 33 Year
  Sex: Female

DRUGS (4)
  1. RELAFEN [Concomitant]
     Dosage: UNK
     Dates: start: 20100605
  2. DROSPIRENONE AND ETHINYL ESTRADIOL [Suspect]
  3. PRILOSEC [Concomitant]
     Dosage: UNK
     Dates: start: 20100605
  4. LORTAB [Concomitant]
     Dosage: UNK UNK, PRN
     Dates: start: 20100605

REACTIONS (1)
  - PULMONARY EMBOLISM [None]
